FAERS Safety Report 19949231 (Version 1)
Quarter: 2021Q4

REPORT INFORMATION
  Report Type: Spontaneous
  Country: US (occurrence: US)
  Receive Date: 20211011
  Receipt Date: 20211011
  Transmission Date: 20220303
  Serious: No
  Sender: FDA-Public Use
  Company Number: None

PATIENT
  Age: 27 Year
  Sex: Female

DRUGS (1)
  1. GANIRELIX ACETATE [Suspect]
     Active Substance: GANIRELIX ACETATE
     Dosage: ?          OTHER FREQUENCY:UNKNOWN;
     Route: 058
     Dates: start: 202110

REACTIONS (2)
  - Flushing [None]
  - Injection site rash [None]

NARRATIVE: CASE EVENT DATE: 20211011
